FAERS Safety Report 4277716-3 (Version None)
Quarter: 2004Q1

REPORT INFORMATION
  Report Type: 
  Country: None (occurrence: None)
  Receive Date: 20040123
  Receipt Date: 20031222
  Transmission Date: 20041129
  Serious: Yes (Hospitalization)
  Sender: FDA-Public Use
  Company Number: PHHO2003JP16623

PATIENT
  Age: 70 Year
  Sex: Female
  Weight: 46 kg

DRUGS (13)
  1. NEORAL [Suspect]
     Indication: RHEUMATOID ARTHRITIS
     Dosage: 100 MG / DAY
     Route: 048
     Dates: start: 20021119, end: 20030407
  2. NEORAL [Suspect]
     Dosage: 75 MG / DAY
     Route: 048
     Dates: start: 20030408, end: 20031003
  3. NEORAL [Suspect]
     Dosage: 75 MG / DAY
     Route: 048
     Dates: start: 20031007
  4. PREDONINE [Concomitant]
     Indication: RHEUMATOID ARTHRITIS
     Dosage: 7.5 MG / DAY
     Route: 048
     Dates: start: 20021119
  5. VOLTAREN [Concomitant]
     Indication: RHEUMATOID ARTHRITIS
     Dosage: 75 MG / DAY
     Route: 048
     Dates: start: 20021119
  6. CATLEP [Concomitant]
     Indication: RHEUMATOID ARTHRITIS
     Dosage: 70 MG / DAY
     Route: 061
     Dates: start: 20021119
  7. KOLANTYL [Concomitant]
  8. ALFAROL [Concomitant]
  9. FERROMIA [Concomitant]
  10. NORVASC [Concomitant]
  11. NU-LOTAN [Concomitant]
  12. TAKEPRON [Concomitant]
  13. VOLTAREN [Concomitant]
     Indication: PELVIC FRACTURE
     Dates: start: 20031209

REACTIONS (7)
  - ABDOMINAL PAIN UPPER [None]
  - ABDOMINAL TENDERNESS [None]
  - BACK PAIN [None]
  - COCCYDYNIA [None]
  - FALL [None]
  - PUBIC RAMI FRACTURE [None]
  - SPINAL COMPRESSION FRACTURE [None]
